FAERS Safety Report 4635806-7 (Version None)
Quarter: 2005Q2

REPORT INFORMATION
  Report Type: 
  Country: None (occurrence: None)
  Receive Date: 20050415
  Receipt Date: 20050201
  Transmission Date: 20051028
  Serious: Yes (Hospitalization)
  Sender: FDA-Public Use
  Company Number: JP-SP-2005-00337

PATIENT
  Age: 71 Year
  Sex: Male

DRUGS (4)
  1. IMMUCYST [Suspect]
     Indication: BLADDER CANCER
     Route: 043
     Dates: start: 20041215, end: 20050128
  2. LOSARTAN POTASSIUM [Concomitant]
     Dosage: 50MG/DAY
     Route: 048
  3. FAMOTIDINE [Concomitant]
     Dosage: 10MG/DAY
     Route: 048
  4. PREDNISOLONE [Concomitant]
     Dosage: 5MG/DAY
     Route: 048

REACTIONS (4)
  - HYPOXIA [None]
  - INTERSTITIAL LUNG DISEASE [None]
  - LYMPHOCYTE STIMULATION TEST POSITIVE [None]
  - PCO2 INCREASED [None]
